FAERS Safety Report 8581547-3 (Version None)
Quarter: 2012Q3

REPORT INFORMATION
  Report Type: 
  Country: None (occurrence: None)
  Receive Date: 20120809
  Receipt Date: 20120726
  Transmission Date: 20120928
  Serious: Yes (Other)
  Sender: FDA-Public Use
  Company Number: GB-MYLANLABS-2012S1015635

PATIENT
  Age: 47 Year
  Sex: Female

DRUGS (10)
  1. WARFARIN SODIUM [Suspect]
     Indication: PULMONARY EMBOLISM
     Dosage: INITIAL DOSE 10MG, GRADUALLY INCREASED TO 15-22MG
     Route: 065
  2. FORTISIP [Interacting]
     Dosage: 3 X 125ML BOTTLES OF PARENTERAL NUTRITION DAILY, CONTAINING 50.25 MICROG VITAMIN K
     Route: 051
  3. OMEPRAZOLE [Concomitant]
     Route: 065
  4. PHENOXYMETHYLPENICILLIN [Concomitant]
     Route: 065
  5. ENOXAPARIN SODIUM [Concomitant]
     Indication: PULMONARY EMBOLISM
     Route: 065
  6. VITAMIN B COMPLEX CAP [Concomitant]
     Route: 048
  7. FOLIC ACID [Concomitant]
     Route: 065
  8. NITRAZEPAM [Concomitant]
     Route: 065
  9. THIAMIN HCL TAB [Concomitant]
     Route: 065
  10. FLUOXETINE HCL [Concomitant]
     Route: 065

REACTIONS (2)
  - INHIBITORY DRUG INTERACTION [None]
  - DRUG RESISTANCE [None]
